FAERS Safety Report 6841151-1 (Version None)
Quarter: 2010Q3

REPORT INFORMATION
  Report Type: 
  Country: None (occurrence: None)
  Receive Date: 20100714
  Receipt Date: 20070625
  Transmission Date: 20110219
  Serious: No
  Sender: FDA-Public Use
  Company Number: US-PFIZER INC-2007053877

PATIENT
  Sex: Female
  Weight: 104.5 kg

DRUGS (2)
  1. CHANTIX [Suspect]
     Indication: SMOKING CESSATION THERAPY
     Dates: start: 20070101, end: 20070622
  2. VYTORIN [Suspect]
     Dates: start: 20070101, end: 20070622

REACTIONS (5)
  - CHAPPED LIPS [None]
  - LIP DRY [None]
  - LIP SWELLING [None]
  - NAUSEA [None]
  - PRURITUS [None]
